FAERS Safety Report 8831892 (Version 1)
Quarter: 2012Q4

REPORT INFORMATION
  Report Type: 
  Country: US (occurrence: US)
  Receive Date: 20121009
  Receipt Date: 20121009
  Transmission Date: 20130627
  Serious: Yes (Hospitalization)
  Sender: FDA-Public Use
  Company Number: US-ABBOTT-12P-163-0989939-00

PATIENT
  Age: 59 Year
  Sex: Female

DRUGS (2)
  1. HUMIRA [Suspect]
     Indication: CROHN^S DISEASE
     Dates: start: 20120905, end: 20120905
  2. HUMIRA [Suspect]
     Dates: start: 20120919, end: 20120919

REACTIONS (6)
  - Peripheral artery thrombosis [Unknown]
  - Jugular vein thrombosis [Unknown]
  - Pain in extremity [Unknown]
  - Diarrhoea haemorrhagic [Unknown]
  - Deep vein thrombosis [Unknown]
  - Incorrect dose administered [Recovered/Resolved]
